FAERS Safety Report 21191878 (Version 2)
Quarter: 2022Q3

REPORT INFORMATION
  Report Type: Spontaneous
  Country: JP (occurrence: JP)
  Receive Date: 20220809
  Receipt Date: 20220906
  Transmission Date: 20221027
  Serious: Yes (Other)
  Sender: FDA-Public Use
  Company Number: JP-ferring-EVA202200302FERRINGPH

PATIENT

DRUGS (4)
  1. DESMOPRESSIN ACETATE [Suspect]
     Active Substance: DESMOPRESSIN ACETATE
     Indication: Diabetes insipidus
     Dosage: 240 UG, 3 TIMES DAILY (SIX TABLETS WERE ADMINISTERED IN THREE DIVIDED DOSES)
     Route: 050
  2. SODIUM CHLORIDE [Concomitant]
     Active Substance: SODIUM CHLORIDE
     Dosage: UNK
     Route: 065
  3. URSO [Concomitant]
     Active Substance: URSODIOL
     Dosage: UNK
     Route: 065
  4. MOSAPRIDE CITRATE [Concomitant]
     Active Substance: MOSAPRIDE CITRATE
     Dosage: UNK
     Route: 065

REACTIONS (8)
  - Renal impairment [Recovering/Resolving]
  - Weight decreased [Unknown]
  - Dehydration [Unknown]
  - Hyponatraemia [Recovered/Resolved]
  - Therapeutic product effect variable [Unknown]
  - Intentional product use issue [Unknown]
  - Contraindicated product administered [Unknown]
  - Labelled drug-disease interaction medication error [Unknown]

NARRATIVE: CASE EVENT DATE: 20220301
